FAERS Safety Report 15243788 (Version 1)
Quarter: 2018Q3

REPORT INFORMATION
  Report Type: Spontaneous
  Country: US (occurrence: US)
  Receive Date: 20180806
  Receipt Date: 20180806
  Transmission Date: 20181010
  Serious: No
  Sender: FDA-Public Use
  Company Number: US-SA-2018SA209076

PATIENT
  Age: 35 Year
  Sex: Female

DRUGS (9)
  1. VITAMIN D [Concomitant]
     Active Substance: CHOLECALCIFEROL
  2. IBU [Concomitant]
     Active Substance: IBUPROFEN
  3. GABAPENTIN. [Concomitant]
     Active Substance: GABAPENTIN
  4. VITAMIN C [Concomitant]
     Active Substance: ASCORBIC ACID
  5. MULTIVIT [VITAMINS NOS] [Concomitant]
  6. ZINC. [Concomitant]
     Active Substance: ZINC
  7. FERROUS SULPHATE [FERROUS SULFATE] [Concomitant]
  8. AUBAGIO [Suspect]
     Active Substance: TERIFLUNOMIDE
     Indication: MULTIPLE SCLEROSIS
     Dosage: 1 DF, QD
     Route: 048
     Dates: start: 20170623
  9. CLA [Concomitant]

REACTIONS (1)
  - Menorrhagia [Unknown]

NARRATIVE: CASE EVENT DATE: 2018
